FAERS Safety Report 5552952-4 (Version None)
Quarter: 2007Q4

REPORT INFORMATION
  Report Type: 
  Country: None (occurrence: None)
  Receive Date: 20071212
  Receipt Date: 20070702
  Transmission Date: 20080405
  Serious: No
  Sender: FDA-Public Use
  Company Number: US-AMGEN-KDL228072

PATIENT
  Sex: Female

DRUGS (9)
  1. ENBREL [Suspect]
     Indication: RHEUMATOID ARTHRITIS
     Route: 058
     Dates: start: 20041115
  2. ENBREL [Suspect]
     Indication: ANKYLOSING SPONDYLITIS
  3. METHOTREXATE [Suspect]
  4. CELEXA [Concomitant]
  5. OXYCONTIN [Concomitant]
  6. CELEBREX [Concomitant]
  7. PREDNISONE [Concomitant]
  8. LORTAB [Concomitant]
  9. FOLIC ACID [Concomitant]

REACTIONS (15)
  - DEPRESSION [None]
  - DRUG INEFFECTIVE [None]
  - EYE INFLAMMATION [None]
  - GASTROOESOPHAGEAL REFLUX DISEASE [None]
  - HYPERCHLORHYDRIA [None]
  - HYPERTENSION [None]
  - INSOMNIA [None]
  - NAUSEA [None]
  - RHEUMATOID ARTHRITIS [None]
  - SACROILIITIS [None]
  - SKIN INFECTION [None]
  - STOMATITIS [None]
  - URTICARIA [None]
  - VISUAL DISTURBANCE [None]
  - VOMITING [None]
